FAERS Safety Report 7794362-5 (Version None)
Quarter: 2011Q4

REPORT INFORMATION
  Report Type: 
  Country: None (occurrence: None)
  Receive Date: 20111004
  Receipt Date: 20110929
  Transmission Date: 20120403
  Serious: Yes (Other)
  Sender: FDA-Public Use
  Company Number: US-PFIZER INC-2011217586

PATIENT
  Sex: Female
  Weight: 56.689 kg

DRUGS (5)
  1. METFORMIN [Concomitant]
     Indication: DIABETES MELLITUS
     Dosage: UNK
  2. ALPRAZOLAM [Suspect]
     Indication: MUSCLE RIGIDITY
     Dosage: 0.5 MG, UNK
     Route: 048
  3. ALPRAZOLAM [Suspect]
     Indication: NERVOUS SYSTEM DISORDER
     Dosage: 2 MG, UNK
     Route: 048
  4. ALPRAZOLAM [Suspect]
     Indication: MYELITIS TRANSVERSE
  5. DICLOFENAC [Concomitant]
     Dosage: UNK, 2X/DAY

REACTIONS (7)
  - DYSTONIA [None]
  - WITHDRAWAL SYNDROME [None]
  - MYOCLONUS [None]
  - INCORRECT DOSE ADMINISTERED [None]
  - WHEELCHAIR USER [None]
  - MUSCLE RIGIDITY [None]
  - GAIT DISTURBANCE [None]
